FAERS Safety Report 12242017 (Version 1)
Quarter: 2016Q2

REPORT INFORMATION
  Report Type: Spontaneous
  Country: US (occurrence: None)
  Receive Date: 20160405
  Receipt Date: 20160405
  Transmission Date: 20160815
  Serious: Yes (Other)
  Sender: FDA-Public Use
  Company Number: None

PATIENT
  Sex: Female

DRUGS (1)
  1. PRALUENT [Suspect]
     Active Substance: ALIROCUMAB
     Indication: HYPERLIPIDAEMIA
     Dosage: 75 MG Q 2 WKS SC
     Route: 058
     Dates: start: 20151201, end: 201603

REACTIONS (5)
  - Headache [None]
  - Injection site reaction [None]
  - Nasopharyngitis [None]
  - Pain [None]
  - Influenza like illness [None]
